FAERS Safety Report 5065959-0 (Version None)
Quarter: 2006Q3

REPORT INFORMATION
  Report Type: 
  Country: None (occurrence: None)
  Receive Date: 20060731
  Receipt Date: 20060725
  Transmission Date: 20061208
  Serious: Yes (Disabling)
  Sender: FDA-Public Use
  Company Number: JP-BOEHRINGER INGELHEIM PHARMACEUTICALS, INC.-2006-BP-08681YA

PATIENT
  Age: 73 Year
  Sex: Male

DRUGS (6)
  1. TAMSULOSIN HCL [Suspect]
     Indication: BENIGN PROSTATIC HYPERPLASIA
     Dosage: UNKNOWN/D
     Route: 048
     Dates: start: 20060323, end: 20060630
  2. MICARDIS [Concomitant]
     Route: 065
  3. DORNER [Concomitant]
     Route: 065
  4. BLADDERON [Concomitant]
     Route: 048
     Dates: start: 20060302, end: 20060630
  5. PLETAL [Concomitant]
     Route: 048
  6. TANATRIL [Concomitant]
     Route: 048

REACTIONS (1)
  - DRUG ERUPTION [None]
